FAERS Safety Report 7943457-1 (Version None)
Quarter: 2011Q4

REPORT INFORMATION
  Report Type: 
  Country: None (occurrence: None)
  Receive Date: 20111128
  Receipt Date: 20111118
  Transmission Date: 20120403
  Serious: Yes (Hospitalization)
  Sender: FDA-Public Use
  Company Number: DE-B.I. PHARMACEUTICALS,INC./RIDGEFIELD-2011-DE-06503DE

PATIENT
  Age: 67 Year
  Sex: Female

DRUGS (3)
  1. PRADAXA [Suspect]
     Indication: ATRIAL FIBRILLATION
     Dates: start: 20111031, end: 20111103
  2. BISOPROLOL FUMARATE [Concomitant]
     Dosage: 1 ANZ
  3. PANTOPRAZOLE [Concomitant]
     Dosage: 1 ANZ

REACTIONS (5)
  - GASTRITIS EROSIVE [None]
  - MUCOSAL ATROPHY [None]
  - NAUSEA [None]
  - OESOPHAGEAL CANDIDIASIS [None]
  - GASTRITIS [None]
